FAERS Safety Report 8380205-8 (Version None)
Quarter: 2012Q2

REPORT INFORMATION
  Report Type: 
  Country: None (occurrence: None)
  Receive Date: 20120523
  Receipt Date: 20120518
  Transmission Date: 20120825
  Serious: No
  Sender: FDA-Public Use
  Company Number: US-ASTRAZENECA-2012SE32373

PATIENT
  Age: 57 Year
  Sex: Female
  Weight: 65.8 kg

DRUGS (7)
  1. VITAMIN D [Concomitant]
  2. CALCIUM [Concomitant]
  3. SEROQUEL [Suspect]
     Indication: ANXIETY
     Route: 048
  4. LOVASTATIN [Concomitant]
     Indication: BLOOD CHOLESTEROL
  5. MULTI-VITAMINS [Concomitant]
  6. LISINOPRIL [Concomitant]
     Indication: HYPERTENSION
  7. VERAPAMIL [Concomitant]
     Indication: HYPERTENSION

REACTIONS (1)
  - OFF LABEL USE [None]
